FAERS Safety Report 9858088 (Version 1)
Quarter: 2014Q1

REPORT INFORMATION
  Report Type: Spontaneous
  Country: PL (occurrence: PL)
  Receive Date: 20140131
  Receipt Date: 20140131
  Transmission Date: 20141002
  Serious: Yes (Life-Threatening, Hospitalization)
  Sender: FDA-Public Use
  Company Number: PL-JNJFOC-20140114042

PATIENT
  Age: 49 Year
  Sex: Female
  Weight: 56 kg

DRUGS (1)
  1. CAELYX (DOXORUBICIN HYDROCHLORIDE) [Suspect]
     Indication: OVARIAN CANCER
     Route: 042
     Dates: start: 20131113, end: 20131113

REACTIONS (5)
  - Skin disorder [Recovering/Resolving]
  - Purpura [Recovering/Resolving]
  - Oesophageal pain [Recovering/Resolving]
  - Pyrexia [Recovering/Resolving]
  - Hypophagia [Recovering/Resolving]
